FAERS Safety Report 8919895 (Version 2)
Quarter: 2012Q4

REPORT INFORMATION
  Report Type: 
  Country: US (occurrence: US)
  Receive Date: 20121121
  Receipt Date: 20121211
  Transmission Date: 20130627
  Serious: Yes (Other)
  Sender: FDA-Public Use
  Company Number: US-PFIZER INC-2012291105

PATIENT
  Age: 54 Year
  Sex: Male
  Weight: 119 kg

DRUGS (5)
  1. LYRICA [Suspect]
     Indication: FIBROMYALGIA
     Dosage: 150 mg, 2x/day
  2. LYRICA [Suspect]
     Indication: NERVE DAMAGE
  3. HYDROCODONE [Concomitant]
     Indication: PAIN
     Dosage: 10 mg, 5x/day
  4. SOMA [Concomitant]
     Indication: PAIN
     Dosage: UNK
  5. DOXEPIN [Concomitant]
     Dosage: UNK

REACTIONS (3)
  - Hearing impaired [Recovering/Resolving]
  - Nasopharyngitis [Recovering/Resolving]
  - Cough [Recovering/Resolving]
